FAERS Safety Report 5264371-9 (Version None)
Quarter: 2007Q1

REPORT INFORMATION
  Report Type: 
  Country: None (occurrence: None)
  Receive Date: 20070309
  Receipt Date: 20070226
  Transmission Date: 20070707
  Serious: Yes (Life-Threatening, Hospitalization, Other)
  Sender: FDA-Public Use
  Company Number: 2007RL000080

PATIENT
  Sex: 0

DRUGS (1)
  1. PROPRANOLOL HYDROCHLORIDE [Suspect]
     Indication: AORTIC ANEURYSM
     Dosage: PO
     Route: 048

REACTIONS (1)
  - AORTIC ANEURYSM RUPTURE [None]
